FAERS Safety Report 8499067-3 (Version None)
Quarter: 2012Q3

REPORT INFORMATION
  Report Type: 
  Country: None (occurrence: None)
  Receive Date: 20120710
  Receipt Date: 20120627
  Transmission Date: 20120928
  Serious: Yes (Hospitalization)
  Sender: FDA-Public Use
  Company Number: NL-AMGEN-NLDCT2012032968

PATIENT
  Age: 62 Year
  Sex: Male
  Weight: 93 kg

DRUGS (8)
  1. ETANERCEPT [Suspect]
     Indication: PRODUCT USED FOR UNKNOWN INDICATION
     Dosage: 50 MG, QWK
     Route: 058
     Dates: start: 20060901, end: 20120331
  2. ETANERCEPT [Suspect]
     Dosage: 50 MG, QWK
     Route: 058
     Dates: start: 20120406
  3. ATORVASTATIN CALCIUM [Concomitant]
     Dosage: 40 MG, 1X/DAY
  4. NIFEDIPINE [Concomitant]
     Dosage: 30 MG, 1X/DAY
  5. ASCAL                              /00002702/ [Concomitant]
     Dosage: 80 MG, 1X/DAY
  6. PANTOPRAZOLE [Concomitant]
     Dosage: 20 MG, 1X/DAY
  7. METOPROLOL [Concomitant]
     Dosage: 25 MG, 1X/DAY
  8. HYDROCHLOROTHIAZIDE [Concomitant]
     Dosage: 12.5 MG, 1X/DAY

REACTIONS (2)
  - PROSTATITIS [None]
  - PYELONEPHRITIS [None]
